FAERS Safety Report 6049022-8 (Version None)
Quarter: 2009Q1

REPORT INFORMATION
  Report Type: 
  Country: None (occurrence: None)
  Receive Date: 20090123
  Receipt Date: 20090114
  Transmission Date: 20090719
  Serious: Yes (Life-Threatening, Hospitalization)
  Sender: FDA-Public Use
  Company Number: US-ELI_LILLY_AND_COMPANY-US200901002322

PATIENT
  Sex: Female

DRUGS (4)
  1. HUMATROPE [Suspect]
     Indication: GROWTH HORMONE DEFICIENCY
     Dosage: UNK, DAILY (1/D)
     Dates: start: 20080101
  2. HUMATROPE [Suspect]
     Dosage: UNK, DAILY (1/D)
  3. ADDERALL 10 [Concomitant]
     Dosage: 30 MG, UNK
  4. PAXIL [Concomitant]
     Dosage: 50 MG, UNK

REACTIONS (6)
  - ASTHENIA [None]
  - CARDIAC ARREST [None]
  - HYSTERECTOMY [None]
  - NAUSEA [None]
  - VISUAL ACUITY REDUCED [None]
  - WEIGHT INCREASED [None]
